FAERS Safety Report 11849683 (Version 4)
Quarter: 2018Q1

REPORT INFORMATION
  Report Type: Report from Study
  Country: US (occurrence: US)
  Receive Date: 20151218
  Receipt Date: 20180319
  Transmission Date: 20180508
  Serious: No
  Sender: FDA-Public Use
  Company Number: GXBR2015US002619

PATIENT
  Sex: Female

DRUGS (2)
  1. OMNITROPE [Suspect]
     Active Substance: SOMATROPIN
     Indication: TURNER^S SYNDROME
     Dosage: 2.7 MG, QD
     Route: 058
     Dates: start: 2013
  2. OMNITROPE [Suspect]
     Active Substance: SOMATROPIN
     Indication: GONADAL DYSGENESIS

REACTIONS (2)
  - Device issue [Unknown]
  - Incorrect dose administered by device [Not Recovered/Not Resolved]
